FAERS Safety Report 16846317 (Version 3)
Quarter: 2020Q2

REPORT INFORMATION
  Report Type: Report from Study
  Country: DE (occurrence: DE)
  Receive Date: 20190924
  Receipt Date: 20200528
  Transmission Date: 20200713
  Serious: Yes (Death, Life-Threatening)
  Sender: FDA-Public Use
  Company Number: DE-MYLANLABS-2019M1089291

PATIENT
  Age: 45 Year
  Sex: Male
  Weight: 88 kg

DRUGS (64)
  1. TOBRAMYCIN. [Suspect]
     Active Substance: TOBRAMYCIN
     Indication: INFECTION
     Dosage: 520 MILLIGRAM, UNK
     Route: 042
     Dates: start: 19981121, end: 19981121
  2. ZIENAM [Suspect]
     Active Substance: CILASTATIN SODIUM\IMIPENEM
     Indication: INFECTION
     Dosage: 500 MILLIGRAM, UNK
     Route: 042
     Dates: start: 19981205, end: 19990101
  3. BACTRIM [Suspect]
     Active Substance: SULFAMETHOXAZOLE\TRIMETHOPRIM
     Indication: INFECTION
     Dosage: 160 MILLIGRAM, UNK
     Route: 042
     Dates: start: 19981204, end: 19981206
  4. FUROSEMID [Suspect]
     Active Substance: FUROSEMIDE
     Indication: OEDEMA
     Dosage: 10 MILLIGRAM, UNK
     Route: 042
     Dates: start: 19981205, end: 19981205
  5. TAVOR (SIMVASTATIN) [Suspect]
     Active Substance: SIMVASTATIN
     Indication: SEDATION
     Dosage: 1 MILLIGRAM, UNK
     Route: 042
     Dates: end: 19981125
  6. AMBISOME [Suspect]
     Active Substance: AMPHOTERICIN B
     Indication: FUNGAL INFECTION
     Dosage: UNK
     Route: 042
     Dates: start: 19981122, end: 19990101
  7. PEPDUL [Concomitant]
     Active Substance: FAMOTIDINE
     Indication: PROPHYLAXIS
     Dosage: 40 MILLIGRAM, UNK
     Route: 042
     Dates: end: 19981110
  8. AMPHOTERICIN B. [Concomitant]
     Active Substance: AMPHOTERICIN B
     Indication: FUNGAL INFECTION
     Dosage: UNK (LEVEL 1/DAY)
     Route: 042
     Dates: start: 19981117, end: 19981121
  9. CALCIUM [Concomitant]
     Active Substance: CALCIUM
     Indication: BLOOD CALCIUM DECREASED
     Dosage: UNK
     Route: 042
  10. MAGNESIUM VERLA [Concomitant]
     Active Substance: MAGNESIUM
     Indication: BLOOD MAGNESIUM DECREASED
     Dosage: INTERMITTENT THERAPY.
     Route: 042
     Dates: end: 19981202
  11. MAGNESIUM VERLA [Concomitant]
     Active Substance: MAGNESIUM
     Dosage: UNK,INTERMITTENT THERAPY
     Route: 042
     Dates: end: 19981202
  12. MTX [Concomitant]
     Active Substance: METHOTREXATE SODIUM
     Indication: BONE MARROW TRANSPLANT
     Dosage: 10 MILLIGRAM
     Route: 042
     Dates: start: 19981111, end: 19981111
  13. PREDNISOLONE. [Suspect]
     Active Substance: PREDNISOLONE
     Indication: CONJUNCTIVITIS
     Dosage: UNK
     Route: 061
     Dates: start: 19981207, end: 19990101
  14. BACTRIM [Suspect]
     Active Substance: SULFAMETHOXAZOLE\TRIMETHOPRIM
     Dosage: 160 MILLIGRAM, UNK
     Route: 042
     Dates: start: 19981113, end: 19981120
  15. FUROSEMID [Suspect]
     Active Substance: FUROSEMIDE
     Dosage: 10 MILLIGRAM, UNK
     Route: 042
     Dates: start: 19981208
  16. GENTAMYCIN [Suspect]
     Active Substance: GENTAMICIN
     Indication: CONJUNCTIVITIS
     Dosage: 1 DROP PER EYE TWICE DAILY (2GTT, UNK)
     Route: 047
     Dates: start: 19981129, end: 19981129
  17. VOMEX A [Suspect]
     Active Substance: DIMENHYDRINATE
     Indication: NAUSEA
     Dosage: UNK
     Route: 042
     Dates: start: 19981118, end: 19981130
  18. ANTRA [Concomitant]
     Active Substance: OMEPRAZOLE
     Indication: PROPHYLAXIS
     Dosage: 20 MILLIGRAM
     Route: 042
     Dates: start: 19981113
  19. ACC [Concomitant]
     Active Substance: ACETYLCYSTEINE
     Indication: UNEVALUABLE EVENT
     Dosage: UNK
     Route: 042
     Dates: start: 19981117, end: 19981119
  20. GRANOCYTE [Concomitant]
     Active Substance: LENOGRASTIM
     Indication: BONE MARROW TRANSPLANT
     Dosage: UNK
     Route: 042
     Dates: end: 19981128
  21. DOPAMINE\DOPAMINE HYDROCHLORIDE [Suspect]
     Active Substance: DOPAMINE HYDROCHLORIDE
     Indication: HYPOTENSION
     Dosage: 1.2 MILLILITER, UNK
     Route: 042
     Dates: start: 19981119, end: 19990101
  22. ZIENAM [Suspect]
     Active Substance: CILASTATIN SODIUM\IMIPENEM
     Dosage: 500 MILLIGRAM, UNK
     Route: 042
     Dates: start: 19981121, end: 19981128
  23. NOVALGIN (METAMIZOLE SODIUM) [Suspect]
     Active Substance: METAMIZOLE SODIUM
     Dosage: 1 GRAM, UNK
     Route: 042
     Dates: start: 19981111, end: 19981121
  24. SANDIMMUN [Concomitant]
     Active Substance: CYCLOSPORINE
     Indication: BONE MARROW TRANSPLANT
     Dosage: UNK
     Route: 042
  25. CANDIO-HERMAL [Concomitant]
     Active Substance: NYSTATIN
     Indication: CANDIDA INFECTION
     Dosage: UNK
     Route: 061
     Dates: start: 19981204, end: 19981204
  26. DIPEPTAMIN [Concomitant]
     Active Substance: AMINO ACIDS, SOURCE UNSPECIFIED
     Indication: PARENTERAL NUTRITION
     Dosage: INTERMITTENT THERAPY.
     Route: 042
     Dates: end: 19981128
  27. MORPHIN [Concomitant]
     Active Substance: MORPHINE
     Indication: SEDATION
     Dosage: 0.5 MILLIGRAM, UNK
     Route: 042
     Dates: start: 19981111, end: 19981123
  28. SODIUM BICARBONATE. [Concomitant]
     Active Substance: SODIUM BICARBONATE
     Indication: ACIDOSIS
     Dosage: INTERMITTENT THERAPY
     Route: 042
     Dates: start: 19981201, end: 19981206
  29. FUROSEMID [Suspect]
     Active Substance: FUROSEMIDE
     Dosage: 10 MILLIGRAM
     Route: 042
     Dates: start: 19981013, end: 19981029
  30. CYMEVEN [Suspect]
     Active Substance: GANCICLOVIR
     Indication: PRODUCT USED FOR UNKNOWN INDICATION
     Dosage: 225 MILLIGRAM, UNK
     Route: 042
     Dates: start: 19981127, end: 19990101
  31. PENTAGLOBIN [Concomitant]
     Active Substance: HUMAN IMMUNOGLOBULIN G
     Indication: BONE MARROW TRANSPLANT
     Dosage: GIVEN ON 15, 19, 26 NOV ONLY.
     Route: 042
     Dates: start: 19981115, end: 19981126
  32. FORTUM [Suspect]
     Active Substance: CEFTAZIDIME
     Dosage: 2 GRAM, UNK
     Route: 042
     Dates: start: 19981111, end: 19981120
  33. BACTRIM [Suspect]
     Active Substance: SULFAMETHOXAZOLE\TRIMETHOPRIM
     Dosage: 160 MILLIGRAM, UNK
     Route: 042
     Dates: start: 19981127, end: 19981129
  34. DIFLUCAN [Suspect]
     Active Substance: FLUCONAZOLE
     Indication: ANTIFUNGAL PROPHYLAXIS
     Dosage: 200 MILLIGRAM, UNK
     Route: 042
     Dates: end: 19981119
  35. KALIUMCHLORID [Concomitant]
     Active Substance: POTASSIUM CHLORIDE
     Indication: HYPOKALAEMIA
     Dosage: INTERMITTENT THERAPY.
     Route: 042
  36. ACTRAPID [Concomitant]
     Active Substance: INSULIN HUMAN
     Indication: DIABETES MELLITUS
     Dosage: 2 INTERNATIONAL UNIT, UNK
     Route: 042
     Dates: start: 19981115, end: 19981207
  37. GLUCOSE [Concomitant]
     Active Substance: DEXTROSE
     Indication: PARENTERAL NUTRITION
     Dosage: 10, 40 OR 70% SOLUTIONS.
     Route: 042
  38. AMPHO-MORONAL [Concomitant]
     Active Substance: AMPHOTERICIN B
     Indication: ANTIFUNGAL PROPHYLAXIS
     Dosage: 4 MILLILITER, UNK
     Route: 055
     Dates: start: 19981111
  39. CLONT [Concomitant]
     Indication: INFECTION
     Dosage: 500 MILLIGRAM, UNK
     Route: 042
  40. VANCOMYCIN [Concomitant]
     Active Substance: VANCOMYCIN
     Indication: INFECTION
     Dosage: INTERMITTENT THERAPY (0.5G, UNK)
     Route: 042
     Dates: start: 19981111
  41. TARIVID [Concomitant]
     Active Substance: OFLOXACIN
     Indication: INFECTION
     Dosage: 200 MILLIGRAM, UNK
     Route: 042
     Dates: end: 19981110
  42. KONAKION [Suspect]
     Active Substance: PHYTONADIONE
     Dosage: 10 MILLIGRAM, UNK
     Route: 042
     Dates: start: 19981112
  43. CIPROBAY                           /01429801/ [Suspect]
     Active Substance: CIPROFLOXACIN
     Indication: CYSTITIS
     Dosage: 400 MILLIGRAM, UNK
     Route: 042
     Dates: start: 19981130, end: 19990101
  44. REMERGIL [Suspect]
     Active Substance: MIRTAZAPINE
     Dosage: 15 MILLIGRAM, UNK
     Route: 048
     Dates: start: 19981126, end: 19981130
  45. NOVALGIN (METAMIZOLE SODIUM) [Suspect]
     Active Substance: METAMIZOLE SODIUM
     Indication: PAIN
     Dosage: IRREGULAR/UNKNOWN DOSING.
     Route: 042
     Dates: start: 19981124, end: 19981128
  46. TAVEGIL [Concomitant]
     Active Substance: CLEMASTINE FUMARATE
     Indication: GRAFT VERSUS HOST DISEASE
     Dosage: UNK
     Route: 042
     Dates: start: 19981118, end: 19981121
  47. ZOVIRAX [Concomitant]
     Active Substance: ACYCLOVIR
     Indication: PROPHYLAXIS
     Dosage: 500 MILLIGRAM, UNK
     Route: 042
     Dates: end: 19981122
  48. PREDNISOLONE. [Suspect]
     Active Substance: PREDNISOLONE
     Dosage: UNK
     Route: 061
     Dates: start: 19981204, end: 19981204
  49. REMERGIL [Suspect]
     Active Substance: MIRTAZAPINE
     Indication: DEPRESSION
     Dosage: 15 MILLIGRAM, UNK
     Route: 048
     Dates: start: 19981203, end: 19981203
  50. FUROSEMID [Suspect]
     Active Substance: FUROSEMIDE
     Dosage: 10 MILLIGRAM, UNK
     Route: 042
     Dates: start: 19981202, end: 19981203
  51. NOVALGIN (METAMIZOLE SODIUM) [Suspect]
     Active Substance: METAMIZOLE SODIUM
     Dosage: 1 GRAM, UNK
     Route: 042
     Dates: start: 19981208
  52. URBASON [Suspect]
     Active Substance: METHYLPREDNISOLONE
     Indication: GRAFT VERSUS HOST DISEASE
     Dosage: UNK
     Route: 042
     Dates: start: 19981121, end: 19990101
  53. DOLANTIN [Concomitant]
     Active Substance: MEPERIDINE
     Indication: SEDATION
     Dosage: INTERMITTENT THERAPY (50MG, UNK)
     Route: 042
     Dates: start: 19981111, end: 19981121
  54. AMPHO-MORONAL [Concomitant]
     Active Substance: AMPHOTERICIN B
     Indication: ANTIFUNGAL PROPHYLAXIS
     Dosage: 4 MILLILITER, UNK
     Route: 048
     Dates: end: 19981110
  55. SODIUM CHLORIDE. [Concomitant]
     Active Substance: SODIUM CHLORIDE
     Indication: HYPONATRAEMIA
     Dosage: UNK
     Route: 042
     Dates: start: 19981113
  56. PROSTAVASIN [Concomitant]
     Active Substance: ALPROSTADIL ALFADEX
     Indication: CARDIOVASCULAR DISORDER
     Dosage: 500 GRAM, UNK
     Route: 042
     Dates: start: 19981111, end: 19981119
  57. KONAKION [Suspect]
     Active Substance: PHYTONADIONE
     Indication: COAGULOPATHY
     Dosage: IRREGULAR/UNKNOWN DOSING.
     Route: 042
     Dates: start: 19981123, end: 19981207
  58. FORTUM [Suspect]
     Active Substance: CEFTAZIDIME
     Indication: INFECTION
     Dosage: 2 GRAM, UNK
     Route: 042
     Dates: start: 19981126, end: 19981205
  59. NOVALGIN (METAMIZOLE SODIUM) [Suspect]
     Active Substance: METAMIZOLE SODIUM
     Dosage: 1 GRAM
     Route: 042
     Dates: start: 19981205, end: 19981205
  60. NEUPOGEN [Suspect]
     Active Substance: FILGRASTIM
     Indication: BONE MARROW TRANSPLANT
     Dosage: 480 MICROGRAM
     Route: 042
     Dates: start: 19981127, end: 19981130
  61. LASIX [Suspect]
     Active Substance: FUROSEMIDE
     Indication: OEDEMA
     Dosage: 40 MILLIGRAM
     Route: 042
     Dates: start: 19981126, end: 19981126
  62. RESONIUM A [Suspect]
     Active Substance: SODIUM POLYSTYRENE SULFONATE
     Indication: HYPERKALAEMIA
     Dosage: 30 GRAM, QD
     Route: 048
     Dates: start: 19981129, end: 19981129
  63. SOLU-DECORTIN [Concomitant]
     Active Substance: PREDNISOLONE SODIUM SUCCINATE
     Indication: GRAFT VERSUS HOST DISEASE
     Dosage: 25 MILLIGRAM, UNK
     Route: 042
     Dates: start: 19981119, end: 19981121
  64. AMPHO-MORONAL [Concomitant]
     Active Substance: AMPHOTERICIN B
     Dosage: 1DF, UNK
     Route: 048
     Dates: end: 19981110

REACTIONS (2)
  - Toxic epidermal necrolysis [Fatal]
  - Graft versus host disease [Fatal]

NARRATIVE: CASE EVENT DATE: 19981121
